FAERS Safety Report 25978846 (Version 1)
Quarter: 2025Q4

REPORT INFORMATION
  Report Type: Spontaneous
  Country: US (occurrence: US)
  Receive Date: 20251030
  Receipt Date: 20251030
  Transmission Date: 20260117
  Serious: No
  Sender: APOTEX
  Company Number: US-APOTEX-2025AP031001

PATIENT
  Sex: Female

DRUGS (1)
  1. BALSALAZIDE DISODIUM [Suspect]
     Active Substance: BALSALAZIDE DISODIUM
     Indication: Product used for unknown indication
     Dosage: UNK, BID (AT MORNING AND NIGHT)
     Route: 065

REACTIONS (2)
  - Somnolence [Not Recovered/Not Resolved]
  - Ill-defined disorder [Not Recovered/Not Resolved]
